FAERS Safety Report 4964472-6 (Version None)
Quarter: 2006Q2

REPORT INFORMATION
  Report Type: 
  Country: None (occurrence: None)
  Receive Date: 20060406
  Receipt Date: 20060403
  Transmission Date: 20061013
  Serious: Yes (Other)
  Sender: FDA-Public Use
  Company Number: GB-RB-3030-2006

PATIENT
  Age: 42 Year
  Sex: Male

DRUGS (2)
  1. BUPRENORPHINE HCL [Suspect]
     Indication: DRUG USE FOR UNKNOWN INDICATION
     Route: 048
  2. BUPRENORPHINE HCL [Suspect]
     Route: 048

REACTIONS (1)
  - HALLUCINATION [None]
